FAERS Safety Report 22621676 (Version 5)
Quarter: 2023Q4

REPORT INFORMATION
  Report Type: Report from Study
  Country: BR (occurrence: BR)
  Receive Date: 20230620
  Receipt Date: 20231114
  Transmission Date: 20240110
  Serious: Yes (Hospitalization)
  Sender: FDA-Public Use
  Company Number: BR-AMGEN-BRACT2023102321

PATIENT
  Age: 14 Year
  Sex: Male

DRUGS (37)
  1. CARFILZOMIB [Suspect]
     Active Substance: CARFILZOMIB
     Indication: Acute lymphocytic leukaemia
     Dosage: UNK
     Route: 042
     Dates: start: 20230411
  2. CYCLOPHOSPHAMIDE [Suspect]
     Active Substance: CYCLOPHOSPHAMIDE
     Indication: Acute lymphocytic leukaemia
     Dosage: 1.47 MILLIGRAM
     Route: 065
     Dates: start: 20230530
  3. CYTARABINE [Suspect]
     Active Substance: CYTARABINE
     Indication: Acute lymphocytic leukaemia
     Dosage: 30-110 MILLIGRAM
     Route: 058
     Dates: start: 20230502
  4. MERCAPTOPURINE [Suspect]
     Active Substance: MERCAPTOPURINE
     Indication: Acute lymphocytic leukaemia
     Dosage: 88 MILLIGRAM
     Route: 065
     Dates: start: 20230530
  5. AMLODIPINE [Concomitant]
     Active Substance: AMLODIPINE BESYLATE
     Dosage: 5 MILLIGRAM
     Route: 048
     Dates: start: 20200330, end: 202307
  6. BACTRIM [Concomitant]
     Active Substance: SULFAMETHOXAZOLE\TRIMETHOPRIM
     Dosage: 1 UNK
     Route: 048
     Dates: start: 20200331, end: 20230817
  7. ATENOLOL [Concomitant]
     Active Substance: ATENOLOL
     Dosage: 50 MILLIGRAM
     Route: 048
     Dates: start: 20221107, end: 202307
  8. ACYCLOVIR [Concomitant]
     Active Substance: ACYCLOVIR
     Dosage: 600 MILLIGRAM
     Route: 048
     Dates: start: 20230330, end: 20230817
  9. DIPYRONE [Concomitant]
     Active Substance: DIPYRONE
     Dosage: 1000 MILLIGRAM
     Route: 042
     Dates: start: 20230427, end: 20230602
  10. LEVETIRACETAM [Concomitant]
     Active Substance: LEVETIRACETAM
     Dosage: 250 MILLIGRAM
     Route: 048
     Dates: start: 20230430
  11. MEROPENEM [Concomitant]
     Active Substance: MEROPENEM
     Dosage: 2 MILLIGRAM
     Route: 042
     Dates: start: 20230505, end: 20230511
  12. VANCOMYCIN [Concomitant]
     Active Substance: VANCOMYCIN
     Dosage: 762 MILLIGRAM
     Route: 042
     Dates: start: 20230505, end: 20230511
  13. ENALAPRIL [Concomitant]
     Active Substance: ENALAPRIL
     Dosage: 10 MILLIGRAM
     Route: 048
     Dates: start: 20230507, end: 202307
  14. SERTRALINE [Concomitant]
     Active Substance: SERTRALINE HYDROCHLORIDE
     Dosage: 25 MILLIGRAM
     Route: 048
     Dates: start: 20230507, end: 202306
  15. MICAFUNGIN [Concomitant]
     Active Substance: MICAFUNGIN SODIUM
     Dosage: 190-203 MILLIGRAM
     Route: 042
     Dates: start: 20230508, end: 20230513
  16. ACETAMINOPHEN [Concomitant]
     Active Substance: ACETAMINOPHEN
     Dosage: 35 GTT DROPS
     Route: 048
     Dates: start: 20230511, end: 20230511
  17. DIPHENHYDRAMINE [Concomitant]
     Active Substance: DIPHENHYDRAMINE
     Dosage: 50 MILLIGRAM; 0.9-1 MILLILTRE
     Route: 042
     Dates: start: 20230530, end: 20230614
  18. MESNA [Concomitant]
     Active Substance: MESNA
     Dosage: 400 MILLIGRAM
     Route: 042
     Dates: start: 20230530, end: 20230530
  19. ALIZAPRIDA [Concomitant]
     Dosage: 50 MILLIGRAM
     Route: 042
     Dates: start: 20230531, end: 20230602
  20. DEXTROSE [Concomitant]
     Active Substance: DEXTROSE\DEXTROSE MONOHYDRATE
     Dosage: 10-235 MILLILITER
     Route: 042
     Dates: start: 20230531, end: 20230531
  21. INSULIN NOS [Concomitant]
     Active Substance: INSULIN NOS
     Dosage: 5 INTERNATIONAL UNIT
     Route: 042
     Dates: start: 20230531, end: 20230531
  22. ALBUTEROL [Concomitant]
     Active Substance: ALBUTEROL
     Dosage: 6 UNK
     Route: 050
     Dates: start: 20230531, end: 20230531
  23. CALCIUM CARBONATE [Concomitant]
     Active Substance: CALCIUM CARBONATE
     Dosage: 2 UNK
     Route: 048
     Dates: start: 20230601, end: 20230603
  24. CEFEPIME [Concomitant]
     Active Substance: CEFEPIME HYDROCHLORIDE
     Dosage: 2000 MILLIGRAM
     Route: 042
     Dates: start: 20230601, end: 20230603
  25. HYDROCORTISONE [Concomitant]
     Active Substance: HYDROCORTISONE
     Dosage: UNK
     Dates: start: 20230502
  26. METHOTREXATE [Concomitant]
     Active Substance: METHOTREXATE
     Dosage: UNK
     Dates: start: 20230502
  27. SODIUM CHLORIDE [Concomitant]
     Active Substance: SODIUM CHLORIDE
     Dosage: 0.9 UNK
     Route: 042
     Dates: start: 20230530, end: 20230601
  28. DEXAMETHASONE [Concomitant]
     Active Substance: DEXAMETHASONE
     Dosage: 4.4 MILLIGRAM
     Route: 042
     Dates: start: 20230530
  29. CALCIUM GLUCONATE [Concomitant]
     Active Substance: CALCIUM GLUCONATE
     Dosage: 10 MILLILITER
     Route: 042
     Dates: start: 20230531, end: 20230602
  30. FUROSEMIDE [Concomitant]
     Active Substance: FUROSEMIDE
     Dosage: 40 MILLIGRAM
     Route: 042
     Dates: start: 20230531, end: 20230531
  31. ONDANSETRON [Concomitant]
     Active Substance: ONDANSETRON
     Dosage: UNK
     Route: 042
     Dates: start: 20230530, end: 20230613
  32. RASBURICASE [Concomitant]
     Active Substance: RASBURICASE
     Dosage: 1.5 MILLIGRAM
     Route: 042
     Dates: start: 20230531, end: 20230601
  33. SODIUM BICARBONATE [Concomitant]
     Active Substance: SODIUM BICARBONATE
     Dosage: UNK
     Route: 048
     Dates: start: 20230601, end: 20230602
  34. KETAMINE [Concomitant]
     Active Substance: KETAMINE
     Dosage: 1 MILLILITER
     Route: 042
     Dates: start: 20230405, end: 20230530
  35. MIDAZOLAM [Concomitant]
     Active Substance: MIDAZOLAM
     Dosage: 10 MILLILITER
     Route: 042
     Dates: start: 20230405, end: 20230530
  36. LEVOFLOXACIN [Concomitant]
     Active Substance: LEVOFLOXACIN
     Dosage: 2 UNK
     Route: 048
     Dates: start: 20230426, end: 202306
  37. FOLIC ACID [Concomitant]
     Active Substance: FOLIC ACID
     Dosage: 2.5 UNK
     Route: 048
     Dates: start: 20230505

REACTIONS (1)
  - Pancytopenia [Not Recovered/Not Resolved]

NARRATIVE: CASE EVENT DATE: 20230610
